FAERS Safety Report 8021886-8 (Version None)
Quarter: 2012Q1

REPORT INFORMATION
  Report Type: 
  Country: None (occurrence: None)
  Receive Date: 20120104
  Receipt Date: 20111222
  Transmission Date: 20120608
  Serious: Yes (Hospitalization, Other)
  Sender: FDA-Public Use
  Company Number: FR-SANOFI-AVENTIS-2011SA075385

PATIENT
  Age: 87 Year
  Sex: Male
  Weight: 64 kg

DRUGS (2)
  1. ENALAPRIL MALEATE [Concomitant]
  2. TAXOTERE [Suspect]
     Indication: PROSTATE CANCER
     Route: 065
     Dates: start: 20110825, end: 20111118

REACTIONS (5)
  - THROMBOSIS [None]
  - HYPOTENSION [None]
  - HAEMATURIA [None]
  - MOUTH INJURY [None]
  - URTICARIA [None]
